FAERS Safety Report 12127130 (Version 1)
Quarter: 2016Q1

REPORT INFORMATION
  Report Type: Other
  Country: US (occurrence: US)
  Receive Date: 20160229
  Receipt Date: 20160229
  Transmission Date: 20160526
  Serious: Yes (Other)
  Sender: FDA-Public Use
  Company Number: US-COL_22172_2016

PATIENT
  Age: 57 Year
  Sex: Male

DRUGS (1)
  1. COLGATE ENAMEL HEALTH MOUTHWASH [Suspect]
     Active Substance: SODIUM FLUORIDE
     Indication: DENTAL DISORDER PROPHYLAXIS
     Dosage: A SMALL AMOUNT/ ONCE/
     Route: 048
     Dates: start: 20160221, end: 20160221

REACTIONS (2)
  - Swelling face [Recovering/Resolving]
  - Hypersensitivity [Recovering/Resolving]

NARRATIVE: CASE EVENT DATE: 20160221
